FAERS Safety Report 7526832-9 (Version None)
Quarter: 2011Q2

REPORT INFORMATION
  Report Type: 
  Country: None (occurrence: None)
  Receive Date: 20110606
  Receipt Date: 20110526
  Transmission Date: 20111010
  Serious: Yes (Hospitalization, Disabling, Other)
  Sender: FDA-Public Use
  Company Number: US-ASTRAZENECA-2010SE18848

PATIENT
  Age: 76 Year
  Sex: Female

DRUGS (11)
  1. TAMOXIFEN CITRATE [Concomitant]
  2. TOPROL-XL [Suspect]
     Route: 048
  3. HYZAAR [Concomitant]
     Dosage: 100/25 DAILY
  4. SPIRONOLACTONE [Concomitant]
  5. ZANTAC [Concomitant]
  6. NORVAC [Concomitant]
  7. ATIVAN [Concomitant]
  8. PENTASA [Concomitant]
  9. GLIPIZIDE [Concomitant]
  10. CLARINEX [Concomitant]
  11. VICODIN [Concomitant]

REACTIONS (23)
  - DIABETES MELLITUS [None]
  - GASTRIC ULCER [None]
  - CARDIAC FAILURE CONGESTIVE [None]
  - DRUG DOSE OMISSION [None]
  - HYPERSENSITIVITY [None]
  - CARDIAC DISORDER [None]
  - GAIT DISTURBANCE [None]
  - EYE OPERATION [None]
  - BLINDNESS [None]
  - HYPERTENSION [None]
  - DIZZINESS [None]
  - CROHN'S DISEASE [None]
  - JOINT SWELLING [None]
  - FUNGAL INFECTION [None]
  - UVEITIS [None]
  - POOR PERIPHERAL CIRCULATION [None]
  - ANXIETY [None]
  - BREAST CANCER [None]
  - BRONCHITIS [None]
  - SINUS DISORDER [None]
  - FOOT DEFORMITY [None]
  - EYE HAEMORRHAGE [None]
  - OEDEMA PERIPHERAL [None]
